FAERS Safety Report 10006358 (Version 2)
Quarter: 2014Q1

REPORT INFORMATION
  Report Type: Spontaneous
  Country: GB (occurrence: GB)
  Receive Date: 20140313
  Receipt Date: 20140328
  Transmission Date: 20141002
  Serious: Yes (Hospitalization)
  Sender: FDA-Public Use
  Company Number: GB-SA-2014SA029207

PATIENT
  Age: 69 Year
  Sex: Female

DRUGS (7)
  1. INDAPAMIDE [Suspect]
     Indication: HYPERTENSION
     Dosage: IN THE MORNING.
     Route: 048
     Dates: end: 20140209
  2. OMEPRAZOLE [Suspect]
     Indication: PRODUCT USED FOR UNKNOWN INDICATION
     Route: 048
     Dates: end: 20140209
  3. ATENOLOL [Concomitant]
  4. ENALAPRIL [Concomitant]
  5. LACTULOSE [Concomitant]
  6. SENNA [Concomitant]
  7. HMG COA REDUCTASE INHIBITORS [Concomitant]
     Dosage: ALSO STOPPED

REACTIONS (4)
  - Unresponsive to stimuli [Unknown]
  - Circulatory collapse [Unknown]
  - Liver function test abnormal [Unknown]
  - Hyponatraemia [Recovered/Resolved]
